FAERS Safety Report 4939225-5 (Version None)
Quarter: 2006Q1

REPORT INFORMATION
  Report Type: 
  Country: None (occurrence: None)
  Receive Date: 20060306
  Receipt Date: 20060221
  Transmission Date: 20060701
  Serious: Yes (Hospitalization)
  Sender: FDA-Public Use
  Company Number: DE200512004006

PATIENT
  Age: 39 Year
  Sex: Female

DRUGS (2)
  1. FORTEO [Suspect]
     Indication: OSTEOPOROSIS
     Dosage: SUBCUTANEOUS
     Route: 058
     Dates: start: 20040101
  2. FORTEO PEN (FORTEO PEN) [Concomitant]

REACTIONS (8)
  - ARRHYTHMIA [None]
  - DIZZINESS [None]
  - HEART ALTERNATION [None]
  - HYPERHIDROSIS [None]
  - INFLUENZA [None]
  - NASOPHARYNGITIS [None]
  - PALPITATIONS [None]
  - SKIN CANCER [None]
